FAERS Safety Report 6790782-6 (Version None)
Quarter: 2010Q2

REPORT INFORMATION
  Report Type: 
  Country: None (occurrence: None)
  Receive Date: 20100624
  Receipt Date: 20100616
  Transmission Date: 20101027
  Serious: Yes (Hospitalization)
  Sender: FDA-Public Use
  Company Number: US-BAXTER-2010BH010696

PATIENT
  Sex: Female

DRUGS (3)
  1. DIANEAL [Suspect]
     Indication: PERITONEAL DIALYSIS
     Route: 033
     Dates: start: 20071201, end: 20100414
  2. DIANEAL [Suspect]
     Route: 033
     Dates: start: 20100418, end: 20100614
  3. EXTRANEAL [Suspect]
     Indication: PERITONEAL DIALYSIS
     Route: 033
     Dates: start: 20100507

REACTIONS (4)
  - FLUID OVERLOAD [None]
  - FLUID RETENTION [None]
  - ULTRAFILTRATION FAILURE [None]
  - WEIGHT INCREASED [None]
